FAERS Safety Report 22207278 (Version 1)
Quarter: 2023Q2

REPORT INFORMATION
  Report Type: Spontaneous
  Country: US (occurrence: US)
  Receive Date: 20230413
  Receipt Date: 20230413
  Transmission Date: 20230722
  Serious: Yes (Other)
  Sender: FDA-Public Use
  Company Number: US-PFIZER INC-PV202300066177

PATIENT
  Age: 78 Year
  Sex: Female

DRUGS (1)
  1. IBRANCE [Suspect]
     Active Substance: PALBOCICLIB
     Indication: Breast cancer metastatic
     Dosage: 125 MG
     Dates: start: 20190325

REACTIONS (11)
  - Acute myocardial infarction [Unknown]
  - Immunodeficiency [Unknown]
  - Electrolyte depletion [Unknown]
  - Oedema peripheral [Unknown]
  - Hyperkeratosis [Unknown]
  - Tinea pedis [Unknown]
  - Varicose vein [Unknown]
  - Excessive cerumen production [Unknown]
  - Type IIa hyperlipidaemia [Unknown]
  - Vitamin D deficiency [Unknown]
  - Back pain [Unknown]

NARRATIVE: CASE EVENT DATE: 20190325
